FAERS Safety Report 7382662-2 (Version None)
Quarter: 2011Q1

REPORT INFORMATION
  Report Type: 
  Country: None (occurrence: None)
  Receive Date: 20110329
  Receipt Date: 20110315
  Transmission Date: 20110831
  Serious: Yes (Hospitalization)
  Sender: FDA-Public Use
  Company Number: JP-MYLANLABS-2011S1005677

PATIENT
  Age: 6 Decade
  Sex: Male

DRUGS (5)
  1. PREDNISOLONE [Suspect]
     Indication: THROMBOCYTOPENIA
     Route: 065
     Dates: end: 20100301
  2. FLUOROURACIL [Suspect]
     Indication: RECTAL CANCER METASTATIC
     Dosage: 17 COURSES OF MFOLFOX6
     Route: 065
  3. BEVACIZUMAB [Suspect]
     Indication: RECTAL CANCER METASTATIC
     Dosage: 17 COURSES
     Route: 065
  4. FOLINIC ACID [Suspect]
     Indication: RECTAL CANCER METASTATIC
     Dosage: 17 COURSES OF MFOLFOX6
     Route: 065
  5. OXALIPLATIN [Suspect]
     Indication: RECTAL CANCER METASTATIC
     Dosage: 17 COURSES OF MFOLFOX6
     Route: 065

REACTIONS (3)
  - ASCITES [None]
  - IDIOPATHIC THROMBOCYTOPENIC PURPURA [None]
  - GLUCOSE TOLERANCE IMPAIRED [None]
